FAERS Safety Report 7724748-6 (Version None)
Quarter: 2011Q3

REPORT INFORMATION
  Report Type: 
  Country: None (occurrence: None)
  Receive Date: 20110901
  Receipt Date: 20110829
  Transmission Date: 20111222
  Serious: Yes (Congenital Anomaly)
  Sender: FDA-Public Use
  Company Number: US-PFIZER INC-2011190547

PATIENT
  Sex: Male
  Weight: 2.9 kg

DRUGS (3)
  1. ZITHROMAX [Concomitant]
     Dosage: 250 MG, UNK
     Route: 064
     Dates: start: 20040511
  2. PREVACID [Concomitant]
     Dosage: 30 MG, 1X/DAY
     Route: 064
     Dates: start: 20040921
  3. ZOLOFT [Suspect]
     Route: 064

REACTIONS (2)
  - MATERNAL EXPOSURE DURING PREGNANCY [None]
  - FOETAL GROWTH RESTRICTION [None]
